FAERS Safety Report 19767808 (Version 3)
Quarter: 2021Q4

REPORT INFORMATION
  Report Type: Report from Study
  Country: US (occurrence: US)
  Receive Date: 20210830
  Receipt Date: 20211208
  Transmission Date: 20220304
  Serious: Yes (Hospitalization, Other)
  Sender: FDA-Public Use
  Company Number: US-TAKEDA-2021TUS038279

PATIENT
  Age: 70 Year
  Sex: Female

DRUGS (10)
  1. HUMAN C1-ESTERASE INHIBITOR [Suspect]
     Active Substance: HUMAN C1-ESTERASE INHIBITOR
     Indication: Immune system disorder
     Dosage: 1000 INTERNATIONAL UNIT, EVERY 3 TO 4 DAYS
     Route: 042
     Dates: start: 20210211
  2. HUMAN C1-ESTERASE INHIBITOR [Suspect]
     Active Substance: HUMAN C1-ESTERASE INHIBITOR
     Indication: Immune system disorder
     Dosage: 1000 INTERNATIONAL UNIT, EVERY 3 TO 4 DAYS
     Route: 042
     Dates: start: 20210211
  3. HUMAN C1-ESTERASE INHIBITOR [Suspect]
     Active Substance: HUMAN C1-ESTERASE INHIBITOR
     Indication: Immune system disorder
     Dosage: 1000 INTERNATIONAL UNIT, EVERY 3 TO 4 DAYS
     Route: 042
     Dates: start: 20210211
  4. HUMAN C1-ESTERASE INHIBITOR [Suspect]
     Active Substance: HUMAN C1-ESTERASE INHIBITOR
     Dosage: 1000 INTERNATIONAL UNIT, EVERY 3 TO 4 DAYS
     Route: 042
     Dates: start: 202102
  5. HUMAN C1-ESTERASE INHIBITOR [Suspect]
     Active Substance: HUMAN C1-ESTERASE INHIBITOR
     Dosage: 1000 INTERNATIONAL UNIT, EVERY 3 TO 4 DAYS
     Route: 042
     Dates: start: 202102
  6. HUMAN C1-ESTERASE INHIBITOR [Suspect]
     Active Substance: HUMAN C1-ESTERASE INHIBITOR
     Dosage: 1000 INTERNATIONAL UNIT, EVERY 3 TO 4 DAYS
     Route: 042
     Dates: start: 202102
  7. FIRAZYR [Suspect]
     Active Substance: ICATIBANT ACETATE
     Indication: Immune system disorder
     Dosage: 30 MILLIGRAM, PRN
     Route: 058
     Dates: start: 20210212
  8. FIRAZYR [Suspect]
     Active Substance: ICATIBANT ACETATE
     Indication: Immune system disorder
     Dosage: 30 MILLIGRAM, PRN
     Route: 058
     Dates: start: 20210212
  9. FIRAZYR [Suspect]
     Active Substance: ICATIBANT ACETATE
     Indication: Hereditary angioedema
  10. FIRAZYR [Suspect]
     Active Substance: ICATIBANT ACETATE
     Indication: Hereditary angioedema

REACTIONS (2)
  - Gastroenteritis salmonella [Unknown]
  - Hereditary angioedema [Recovered/Resolved]

NARRATIVE: CASE EVENT DATE: 20210612
